FAERS Safety Report 25628385 (Version 1)
Quarter: 2025Q3

REPORT INFORMATION
  Report Type: Spontaneous
  Country: US (occurrence: None)
  Receive Date: 20250731
  Receipt Date: 20250731
  Transmission Date: 20251020
  Serious: Yes (Hospitalization)
  Sender: FDA-CTU
  Company Number: None

PATIENT
  Sex: Female

DRUGS (10)
  1. TEZSPIRE [Suspect]
     Active Substance: TEZEPELUMAB-EKKO
     Indication: Asthma
     Route: 058
     Dates: start: 20230606
  2. ALBUTEROL AER HFA [Concomitant]
  3. AZITHROMYCIN [Concomitant]
     Active Substance: AZITHROMYCIN
  4. BENZONATATE [Concomitant]
     Active Substance: BENZONATATE
  5. CLARITIN [Concomitant]
     Active Substance: LORATADINE
  6. ESTRADIOL [Concomitant]
     Active Substance: ESTRADIOL
  7. FLUCONAZOLE [Concomitant]
     Active Substance: FLUCONAZOLE
  8. MONTELUKAST SODIUM [Concomitant]
     Active Substance: MONTELUKAST SODIUM
  9. OMEPRAZOLE [Concomitant]
     Active Substance: OMEPRAZOLE
  10. TRELEGY  AER [Concomitant]

REACTIONS (2)
  - Asthma [None]
  - Quality of life decreased [None]
